FAERS Safety Report 6246893-7 (Version None)
Quarter: 2009Q2

REPORT INFORMATION
  Report Type: 
  Country: None (occurrence: None)
  Receive Date: 20090626
  Receipt Date: 20090617
  Transmission Date: 20091009
  Serious: Yes (Other)
  Sender: FDA-Public Use
  Company Number: US-AMGEN-US352126

PATIENT
  Sex: Female

DRUGS (11)
  1. NEULASTA [Suspect]
     Indication: CHEMOTHERAPY
     Dates: start: 20090611
  2. CYTOXAN [Concomitant]
     Dates: start: 20090610
  3. DOXORUBICIN HCL [Concomitant]
     Dates: start: 20090610
  4. GLIPIZIDE [Concomitant]
  5. DIOVAN [Concomitant]
  6. ACTOS [Concomitant]
  7. PLAVIX [Concomitant]
  8. PRANDIN [Concomitant]
  9. EFFEXOR [Concomitant]
  10. ASPIRIN [Concomitant]
  11. VITAMIN D [Concomitant]

REACTIONS (1)
  - THERAPEUTIC RESPONSE DECREASED [None]
